FAERS Safety Report 17962235 (Version 1)
Quarter: 2020Q2

REPORT INFORMATION
  Report Type: Spontaneous
  Country: JP (occurrence: JP)
  Receive Date: 20200630
  Receipt Date: 20200630
  Transmission Date: 20200714
  Serious: Yes (Other)
  Sender: FDA-Public Use
  Company Number: JP-TEVA-2020-JP-004192J

PATIENT
  Age: 88 Year
  Sex: Female

DRUGS (11)
  1. SUGLAT [Concomitant]
     Active Substance: IPRAGLIFLOZIN L-PROLINE
     Indication: TYPE 2 DIABETES MELLITUS
     Dosage: 50 MILLIGRAM DAILY;
     Route: 048
  2. MIYA-BM [Concomitant]
     Active Substance: CLOSTRIDIUM BUTYRICUM SPORES STRAIN M-55
     Route: 065
  3. PREDNISOLONE TABLETS 5MG. [Suspect]
     Active Substance: PREDNISOLONE
     Indication: INFLAMMATION
     Route: 048
     Dates: start: 20200309, end: 202004
  4. PYDOXAL [Concomitant]
     Active Substance: PYRIDOXAL
     Route: 065
  5. RHEUMATREX [Concomitant]
     Active Substance: METHOTREXATE SODIUM
     Route: 065
     Dates: start: 20200622
  6. LANSOPRAZOLE OD [Concomitant]
     Active Substance: LANSOPRAZOLE
     Indication: GASTROOESOPHAGEAL REFLUX DISEASE
     Dosage: 1 DOSAGE FORMS DAILY;
     Route: 048
  7. JANUVIA [Concomitant]
     Active Substance: SITAGLIPTIN PHOSPHATE
     Indication: TYPE 2 DIABETES MELLITUS
     Dosage: 50 MILLIGRAM DAILY;
     Route: 048
  8. BONALON [Concomitant]
     Active Substance: ALENDRONATE SODIUM
     Route: 065
  9. PREDNISOLONE TABLETS 5MG. [Suspect]
     Active Substance: PREDNISOLONE
     Route: 048
     Dates: start: 202004, end: 202005
  10. PREDNISOLONE TABLETS 5MG. [Suspect]
     Active Substance: PREDNISOLONE
     Route: 048
     Dates: start: 202005
  11. BELSOMRA [Concomitant]
     Active Substance: SUVOREXANT
     Route: 065
     Dates: start: 20200309

REACTIONS (1)
  - Mental impairment [Not Recovered/Not Resolved]
